FAERS Safety Report 9651023 (Version 1)
Quarter: 2013Q4

REPORT INFORMATION
  Report Type: Spontaneous
  Country: US (occurrence: US)
  Receive Date: 20131029
  Receipt Date: 20131029
  Transmission Date: 20140711
  Serious: Yes (Other)
  Sender: FDA-Public Use
  Company Number: PHEH2013US022356

PATIENT
  Sex: Female

DRUGS (3)
  1. FAMVIR [Suspect]
     Dosage: 500 MG, QID
  2. FAMVIR [Suspect]
     Dosage: UNK UKN, UNK
  3. PHENOBARBITAL [Concomitant]
     Dosage: 32 MG, BID

REACTIONS (6)
  - Eye injury [Unknown]
  - Visual impairment [Unknown]
  - Cognitive disorder [Unknown]
  - Eye infection viral [Unknown]
  - Speech disorder [Unknown]
  - Confusional state [Unknown]
